FAERS Safety Report 10690211 (Version 1)
Quarter: 2015Q1

REPORT INFORMATION
  Report Type: Spontaneous
  Country: US (occurrence: None)
  Receive Date: 20150102
  Receipt Date: 20150102
  Transmission Date: 20150720
  Serious: No
  Sender: FDA-Public Use
  Company Number: None

PATIENT
  Age: 44 Year
  Sex: Female
  Weight: 58.97 kg

DRUGS (1)
  1. NEUTROGENA OIL FREE ACNE WASH [Suspect]
     Active Substance: SALICYLIC ACID
     Indication: INFECTION PROPHYLAXIS
     Dates: start: 20141227, end: 20141228

REACTIONS (6)
  - Application site exfoliation [None]
  - Application site pain [None]
  - Application site swelling [None]
  - Skin burning sensation [None]
  - Application site pruritus [None]
  - Skin fissures [None]

NARRATIVE: CASE EVENT DATE: 20141227
